FAERS Safety Report 25189571 (Version 3)
Quarter: 2025Q4

REPORT INFORMATION
  Report Type: Report from Study
  Country: EU (occurrence: EU)
  Receive Date: 20250411
  Receipt Date: 20251013
  Transmission Date: 20260117
  Serious: Yes (Other)
  Sender: KYOWA
  Company Number: EU-KYOWAKIRIN-2025KK006294

PATIENT

DRUGS (44)
  1. MOGAMULIZUMAB [Suspect]
     Active Substance: MOGAMULIZUMAB
     Indication: Cutaneous T-cell lymphoma
     Dosage: 68 MG (60 MINUTES INFUSION COMPLETE DOSE ADMINISTERED)
     Route: 042
     Dates: start: 20240305
  2. MOGAMULIZUMAB [Suspect]
     Active Substance: MOGAMULIZUMAB
     Dosage: 68 MG (60 MINUTES INFUSION COMPLETE DOSE ADMINISTERED)
     Route: 042
     Dates: start: 20240314
  3. MOGAMULIZUMAB [Suspect]
     Active Substance: MOGAMULIZUMAB
     Dosage: 68 MG (60 MINUTES INFUSION COMPLETE DOSE ADMINISTERED)
     Route: 042
     Dates: start: 20240322
  4. MOGAMULIZUMAB [Suspect]
     Active Substance: MOGAMULIZUMAB
     Dosage: 68 MG (60 MINUTES INFUSION COMPLETE DOSE ADMINISTERED)
     Route: 042
     Dates: start: 20240328
  5. MOGAMULIZUMAB [Suspect]
     Active Substance: MOGAMULIZUMAB
     Dosage: 68 MG (60 MINUTES INFUSION COMPLETE DOSE ADMINISTERED)
     Route: 042
     Dates: start: 20240403
  6. MOGAMULIZUMAB [Suspect]
     Active Substance: MOGAMULIZUMAB
     Dosage: 68 MG (60 MINUTES INFUSION COMPLETE DOSE ADMINISTERED)
     Route: 042
     Dates: start: 20240417
  7. MOGAMULIZUMAB [Suspect]
     Active Substance: MOGAMULIZUMAB
     Dosage: 68 MG (60 MINUTES INFUSION COMPLETE DOSE ADMINISTERED)
     Route: 042
     Dates: start: 20240502
  8. MOGAMULIZUMAB [Suspect]
     Active Substance: MOGAMULIZUMAB
     Dosage: 68 MG (60 MINUTES INFUSION COMPLETE DOSE ADMINISTERED)
     Route: 042
     Dates: start: 20240517
  9. MOGAMULIZUMAB [Suspect]
     Active Substance: MOGAMULIZUMAB
     Dosage: 68 MG (60 MINUTES INFUSION COMPLETE DOSE ADMINISTERED)
     Route: 042
     Dates: start: 20240531
  10. MOGAMULIZUMAB [Suspect]
     Active Substance: MOGAMULIZUMAB
     Dosage: 68 MG (60 MINUTES INFUSION COMPLETE DOSE ADMINISTERED)
     Route: 042
     Dates: start: 20240628
  11. MOGAMULIZUMAB [Suspect]
     Active Substance: MOGAMULIZUMAB
     Dosage: 68 MG (60 MINUTES INFUSION COMPLETE DOSE ADMINISTERED)
     Route: 042
     Dates: start: 20240711
  12. MOGAMULIZUMAB [Suspect]
     Active Substance: MOGAMULIZUMAB
     Dosage: 68 MG (60 MINUTES INFUSION COMPLETE DOSE ADMINISTERED)
     Route: 042
     Dates: start: 20240726
  13. MOGAMULIZUMAB [Suspect]
     Active Substance: MOGAMULIZUMAB
     Dosage: 62 MG (60 MINUTES INFUSION COMPLETE DOSE ADMINISTERED)
     Route: 042
     Dates: start: 20240809
  14. MOGAMULIZUMAB [Suspect]
     Active Substance: MOGAMULIZUMAB
     Dosage: 62 MG (60 MINUTES INFUSION COMPLETE DOSE ADMINISTERED)
     Route: 042
     Dates: start: 20240823
  15. MOGAMULIZUMAB [Suspect]
     Active Substance: MOGAMULIZUMAB
     Dosage: 62 MG (60 MINUTES INFUSION COMPLETE DOSE ADMINISTERED)
     Route: 042
     Dates: start: 20240906
  16. MOGAMULIZUMAB [Suspect]
     Active Substance: MOGAMULIZUMAB
     Dosage: 62 MG (60 MINUTES INFUSION COMPLETE DOSE ADMINISTERED)
     Route: 042
     Dates: start: 20240919
  17. MOGAMULIZUMAB [Suspect]
     Active Substance: MOGAMULIZUMAB
     Dosage: 62 MG (60 MINUTES INFUSION COMPLETE DOSE ADMINISTERED)
     Route: 042
     Dates: start: 20241004
  18. MOGAMULIZUMAB [Suspect]
     Active Substance: MOGAMULIZUMAB
     Dosage: 70 MG (60 MINUTES INFUSION COMPLETE DOSE ADMINISTERED)
     Route: 042
     Dates: start: 20241018
  19. MOGAMULIZUMAB [Suspect]
     Active Substance: MOGAMULIZUMAB
     Dosage: 70 MG (60 MINUTES INFUSION COMPLETE DOSE ADMINISTERED)
     Route: 042
     Dates: start: 20241030
  20. MOGAMULIZUMAB [Suspect]
     Active Substance: MOGAMULIZUMAB
     Dosage: 70 MG (60 MINUTES INFUSION COMPLETE DOSE ADMINISTERED)
     Route: 042
     Dates: start: 20241115
  21. MOGAMULIZUMAB [Suspect]
     Active Substance: MOGAMULIZUMAB
     Dosage: 70 MG (60 MINUTES INFUSION COMPLETE DOSE ADMINISTERED)
     Route: 042
     Dates: start: 20241129
  22. MOGAMULIZUMAB [Suspect]
     Active Substance: MOGAMULIZUMAB
     Dosage: 70 MG (60 MINUTES INFUSION COMPLETE DOSE ADMINISTERED)
     Route: 042
     Dates: start: 20241213
  23. MOGAMULIZUMAB [Suspect]
     Active Substance: MOGAMULIZUMAB
     Dosage: 70 MG (60 MINUTES INFUSION COMPLETE DOSE ADMINISTERED)
     Route: 042
     Dates: start: 20241224
  24. MOGAMULIZUMAB [Suspect]
     Active Substance: MOGAMULIZUMAB
     Dosage: 70 MG (60 MINUTES INFUSION COMPLETE DOSE ADMINISTERED)
     Route: 042
     Dates: start: 20250107
  25. MOGAMULIZUMAB [Suspect]
     Active Substance: MOGAMULIZUMAB
     Dosage: 70 MG (60 MINUTES INFUSION COMPLETE DOSE ADMINISTERED)
     Route: 042
     Dates: start: 20250121
  26. MOGAMULIZUMAB [Suspect]
     Active Substance: MOGAMULIZUMAB
     Dosage: 70 MG (60 MINUTES INFUSION COMPLETE DOSE ADMINISTERED)
     Route: 042
     Dates: start: 20250204
  27. MOGAMULIZUMAB [Suspect]
     Active Substance: MOGAMULIZUMAB
     Dosage: 70 MG (60 MINUTES INFUSION COMPLETE DOSE ADMINISTERED)
     Route: 042
     Dates: start: 20250218
  28. MOGAMULIZUMAB [Suspect]
     Active Substance: MOGAMULIZUMAB
     Dosage: 70 MG (60 MINUTES INFUSION COMPLETE DOSE ADMINISTERED)
     Route: 042
     Dates: start: 20250304
  29. MOGAMULIZUMAB [Suspect]
     Active Substance: MOGAMULIZUMAB
     Dosage: 70 MG (60 MINUTES INFUSION COMPLETE DOSE ADMINISTERED)
     Route: 042
     Dates: start: 20250318
  30. MOGAMULIZUMAB [Suspect]
     Active Substance: MOGAMULIZUMAB
     Dosage: 70 MG (60 MINUTES INFUSION COMPLETE DOSE ADMINISTERED)
     Route: 042
     Dates: start: 20250403
  31. MOGAMULIZUMAB [Suspect]
     Active Substance: MOGAMULIZUMAB
     Dosage: 70 MG (60 MINUTES INFUSION COMPLETE DOSE ADMINISTERED)
     Route: 042
     Dates: start: 20250415
  32. MOGAMULIZUMAB [Suspect]
     Active Substance: MOGAMULIZUMAB
     Dosage: 70 MG (60 MINUTES INFUSION COMPLETE DOSE ADMINISTERED)
     Route: 042
     Dates: start: 20250429
  33. MOGAMULIZUMAB [Suspect]
     Active Substance: MOGAMULIZUMAB
     Dosage: 70 MG (60 MINUTES INFUSION COMPLETE DOSE ADMINISTERED)
     Route: 042
     Dates: start: 20250513
  34. MOGAMULIZUMAB [Suspect]
     Active Substance: MOGAMULIZUMAB
     Dosage: 70 MG (60 MINUTES INFUSION COMPLETE DOSE ADMINISTERED)
     Route: 042
     Dates: start: 20250513
  35. MOGAMULIZUMAB [Suspect]
     Active Substance: MOGAMULIZUMAB
     Dosage: 70 MG (60 MINUTES INFUSION COMPLETE DOSE ADMINISTERED)
     Route: 042
     Dates: start: 20250527
  36. MOGAMULIZUMAB [Suspect]
     Active Substance: MOGAMULIZUMAB
     Dosage: 70 MG (60 MINUTES INFUSION COMPLETE DOSE ADMINISTERED)
     Route: 042
     Dates: start: 20250610
  37. MOGAMULIZUMAB [Suspect]
     Active Substance: MOGAMULIZUMAB
     Dosage: 70 MG (60 MINUTES INFUSION COMPLETE DOSE ADMINISTERED)
     Route: 042
     Dates: start: 20250624
  38. MOGAMULIZUMAB [Suspect]
     Active Substance: MOGAMULIZUMAB
     Dosage: 70 MG (60 MINUTES INFUSION COMPLETE DOSE ADMINISTERED)
     Route: 042
     Dates: start: 20250708
  39. MOGAMULIZUMAB [Suspect]
     Active Substance: MOGAMULIZUMAB
     Dosage: 70 MG (60 MINUTES INFUSION COMPLETE DOSE ADMINISTERED)
     Route: 042
     Dates: start: 20250722
  40. MOGAMULIZUMAB [Suspect]
     Active Substance: MOGAMULIZUMAB
     Dosage: 70 MG (60 MINUTES INFUSION COMPLETE DOSE ADMINISTERED)
     Route: 042
     Dates: start: 20250805
  41. MOGAMULIZUMAB [Suspect]
     Active Substance: MOGAMULIZUMAB
     Dosage: 70 MG (60 MINUTES INFUSION COMPLETE DOSE ADMINISTERED)
     Route: 042
     Dates: start: 20250819
  42. MOGAMULIZUMAB [Suspect]
     Active Substance: MOGAMULIZUMAB
     Dosage: 70 MG (60 MINUTES INFUSION COMPLETE DOSE ADMINISTERED)
     Route: 042
     Dates: start: 20250902
  43. MOGAMULIZUMAB [Suspect]
     Active Substance: MOGAMULIZUMAB
     Dosage: 70 MG (60 MINUTES INFUSION COMPLETE DOSE ADMINISTERED)
     Route: 042
     Dates: start: 20250930
  44. MECHLORETHAMINE [Concomitant]
     Active Substance: MECHLORETHAMINE
     Indication: Product used for unknown indication
     Dosage: UNK
     Route: 065
     Dates: start: 20240711

REACTIONS (2)
  - Hepatic cytolysis [Recovered/Resolved with Sequelae]
  - Inappropriate schedule of product administration [Unknown]

NARRATIVE: CASE EVENT DATE: 20240529
